FAERS Safety Report 9366701 (Version 2)
Quarter: 2013Q3

REPORT INFORMATION
  Report Type: Spontaneous
  Country: US (occurrence: US)
  Receive Date: 20130625
  Receipt Date: 20130827
  Transmission Date: 20140515
  Serious: Yes (Other)
  Sender: FDA-Public Use
  Company Number: US-PAR PHARMACEUTICAL, INC-2013SCPR005988

PATIENT
  Sex: 0

DRUGS (5)
  1. METOCLOPRAMIDE [Suspect]
     Indication: PRODUCT USED FOR UNKNOWN INDICATION
     Dosage: 10 MG, AFTER MEALS AND HS AS NEEDED
     Route: 048
     Dates: start: 20051008, end: 20060507
  2. METOCLOPRAMIDE [Suspect]
     Dosage: 10 MG, UNKNOWN
     Route: 048
     Dates: start: 20070123, end: 20080404
  3. METOCLOPRAMIDE [Suspect]
     Dosage: 10 MG, UNKNOWN
     Route: 048
     Dates: start: 20080507, end: 20080611
  4. METOCLOPRAMIDE [Suspect]
     Dosage: 10 MG, UNKNOWN
     Route: 048
     Dates: start: 20080905, end: 20090309
  5. METOCLOPRAMIDE [Suspect]
     Dosage: 10 MG, UNKNOWN
     Route: 048
     Dates: start: 20090606, end: 20100201

REACTIONS (6)
  - Impaired gastric emptying [Not Recovered/Not Resolved]
  - Social avoidant behaviour [Not Recovered/Not Resolved]
  - Tardive dyskinesia [Not Recovered/Not Resolved]
  - Extrapyramidal disorder [Not Recovered/Not Resolved]
  - Feeling abnormal [Not Recovered/Not Resolved]
  - Rash [Recovered/Resolved]
